FAERS Safety Report 21825490 (Version 1)
Quarter: 2023Q1

REPORT INFORMATION
  Report Type: Spontaneous
  Country: US (occurrence: None)
  Receive Date: 20230105
  Receipt Date: 20230105
  Transmission Date: 20230418
  Serious: Yes (Other)
  Sender: FDA-Public Use
  Company Number: None

PATIENT
  Age: 57 Year
  Sex: Female
  Weight: 92.25 kg

DRUGS (1)
  1. VILAZODONE [Suspect]
     Active Substance: VILAZODONE
     Indication: Depression
     Dosage: FREQUENCY : DAILY;?
     Route: 048
     Dates: start: 20221224

REACTIONS (5)
  - Abdominal pain [None]
  - Diarrhoea [None]
  - Nausea [None]
  - Vision blurred [None]
  - Fatigue [None]

NARRATIVE: CASE EVENT DATE: 20221224
